FAERS Safety Report 4279908-6 (Version None)
Quarter: 2004Q1

REPORT INFORMATION
  Report Type: 
  Country: None (occurrence: None)
  Receive Date: 20040127
  Receipt Date: 20040127
  Transmission Date: 20041129
  Serious: Yes (Hospitalization)
  Sender: FDA-Public Use
  Company Number: None

PATIENT
  Age: 49 Year
  Sex: Male
  Weight: 131.0895 kg

DRUGS (5)
  1. EPIRUBICIN [Suspect]
     Indication: HEPATIC NEOPLASM MALIGNANT
     Dosage: 15 MG/M2  WEEKLY   INTRAVENOUS
     Route: 042
     Dates: start: 20030916, end: 20040106
  2. THALIDOMIDE [Suspect]
     Indication: HEPATIC NEOPLASM MALIGNANT
     Dosage: 200 MG DAILY   ORAL
     Route: 048
     Dates: start: 20030916, end: 20040126
  3. HYOSCYAMINE SULFATE/LISINOPRIL/KCL [Concomitant]
  4. PROZAC/RISPERDAL [Concomitant]
  5. ARANESP/LASIX [Concomitant]

REACTIONS (3)
  - ABDOMINAL PAIN [None]
  - DIARRHOEA [None]
  - FALL [None]
